FAERS Safety Report 15357110 (Version 1)
Quarter: 2018Q3

REPORT INFORMATION
  Report Type: Spontaneous
  Country: US (occurrence: US)
  Receive Date: 20180830
  Receipt Date: 20180830
  Transmission Date: 20181010
  Serious: Yes (Hospitalization)
  Sender: FDA-Public Use
  Company Number: None

PATIENT
  Age: 76 Year
  Sex: Male
  Weight: 96.3 kg

DRUGS (2)
  1. AZACITIDINE. [Suspect]
     Active Substance: AZACITIDINE
  2. PEMBROLIZUMAB. [Suspect]
     Active Substance: PEMBROLIZUMAB

REACTIONS (7)
  - Dysgeusia [None]
  - Dehydration [None]
  - Acute kidney injury [None]
  - Dyspnoea [None]
  - Decreased appetite [None]
  - Hypophagia [None]
  - Dizziness [None]

NARRATIVE: CASE EVENT DATE: 20180829
